FAERS Safety Report 8018623-X (Version None)
Quarter: 2012Q1

REPORT INFORMATION
  Report Type: 
  Country: None (occurrence: None)
  Receive Date: 20120103
  Receipt Date: 20111222
  Transmission Date: 20120608
  Serious: Yes (Hospitalization)
  Sender: FDA-Public Use
  Company Number: US-JNJFOC-20111210322

PATIENT
  Sex: Female
  Weight: 64.7 kg

DRUGS (2)
  1. INFLIXIMAB, RECOMBINANT [Suspect]
     Indication: COLITIS ULCERATIVE
     Route: 042
  2. MESALAMINE [Concomitant]
     Route: 048

REACTIONS (3)
  - COLITIS ULCERATIVE [None]
  - HEPATIC VEIN THROMBOSIS [None]
  - PORTAL VEIN THROMBOSIS [None]
